FAERS Safety Report 10677429 (Version 2)
Quarter: 2015Q1

REPORT INFORMATION
  Report Type: Spontaneous
  Country: JP (occurrence: JP)
  Receive Date: 20141227
  Receipt Date: 20150123
  Transmission Date: 20150720
  Serious: Yes (Hospitalization)
  Sender: FDA-Public Use
  Company Number: JP-SA-2014SA178875

PATIENT
  Age: 67 Year
  Sex: Male
  Weight: 59 kg

DRUGS (7)
  1. RENAGEL [Suspect]
     Active Substance: SEVELAMER HYDROCHLORIDE
     Indication: HYPERPHOSPHATAEMIA
     Route: 048
     Dates: start: 20140208, end: 20140418
  2. LANTHANUM CARBONATE. [Suspect]
     Active Substance: LANTHANUM CARBONATE
     Route: 065
     Dates: start: 2014
  3. BLOPRESS [Concomitant]
     Active Substance: CANDESARTAN CILEXETIL
     Route: 048
  4. RENAGEL [Suspect]
     Active Substance: SEVELAMER HYDROCHLORIDE
     Indication: HYPERPHOSPHATAEMIA
     Route: 048
     Dates: start: 20140419, end: 20141023
  5. PODONIN S [Concomitant]
     Dosage: GRANULATED POWDER; 3/1 DAYS
     Route: 048
  6. RENAGEL [Suspect]
     Active Substance: SEVELAMER HYDROCHLORIDE
     Indication: HYPERPHOSPHATAEMIA
     Dosage: STOP DATE 2013
     Route: 048
     Dates: start: 20130315
  7. RENAGEL [Suspect]
     Active Substance: SEVELAMER HYDROCHLORIDE
     Indication: HYPERPHOSPHATAEMIA
     Route: 048
     Dates: start: 20131023, end: 20140207

REACTIONS (9)
  - Haematemesis [Unknown]
  - Haemorrhagic anaemia [Unknown]
  - Haematochezia [Recovered/Resolved]
  - Duodenal ulcer haemorrhage [Unknown]
  - Diverticulum intestinal haemorrhagic [Recovered/Resolved]
  - Helicobacter infection [Unknown]
  - Melaena [Unknown]
  - Diverticulum intestinal haemorrhagic [Recovered/Resolved]
  - Melaena [Recovered/Resolved]

NARRATIVE: CASE EVENT DATE: 20131111
